FAERS Safety Report 10026982 (Version 1)
Quarter: 2014Q1

REPORT INFORMATION
  Report Type: Spontaneous
  Country: US (occurrence: US)
  Receive Date: 20140321
  Receipt Date: 20140321
  Transmission Date: 20141002
  Serious: No
  Sender: FDA-Public Use
  Company Number: US-MYLANLABS-2013S1025905

PATIENT
  Age: 4 Year
  Sex: Female
  Weight: 15.88 kg

DRUGS (2)
  1. ALBUTEROL SULFATE INHALATION SOLUTION 0.083% [Suspect]
     Indication: CYSTIC FIBROSIS
     Route: 055
  2. ALBUTEROL SULFATE INHALATION SOLUTION 0.083% [Suspect]
     Indication: LUNG DISORDER
     Route: 055

REACTIONS (2)
  - Incorrect route of drug administration [Recovered/Resolved]
  - No adverse event [Recovered/Resolved]
